FAERS Safety Report 6985566-X (Version None)
Quarter: 2010Q3

REPORT INFORMATION
  Report Type: 
  Country: None (occurrence: None)
  Receive Date: 20100915
  Receipt Date: 20100906
  Transmission Date: 20110219
  Serious: Yes (Hospitalization)
  Sender: FDA-Public Use
  Company Number: JP-MERCK-1008USA03043

PATIENT
  Age: 70 Year
  Sex: Male
  Weight: 66 kg

DRUGS (3)
  1. ZOCOR [Suspect]
     Indication: HYPERLIPIDAEMIA
     Route: 048
     Dates: start: 20080101, end: 20100707
  2. HERBESSER [Suspect]
     Indication: MYOCARDIAL INFARCTION
     Route: 048
     Dates: end: 20100707
  3. FRANDOL [Suspect]
     Indication: MYOCARDIAL INFARCTION
     Route: 048
     Dates: end: 20100707

REACTIONS (3)
  - AUTOIMMUNE HEPATITIS [None]
  - JAUNDICE [None]
  - PLATELET COUNT DECREASED [None]
